FAERS Safety Report 23446333 (Version 1)
Quarter: 2024Q1

REPORT INFORMATION
  Report Type: Other
  Country: EG (occurrence: EG)
  Receive Date: 20240126
  Receipt Date: 20240126
  Transmission Date: 20240409
  Serious: Yes (Other)
  Sender: FDA-Public Use
  Company Number: EG-EGYPT REGULATORY AGENCY (CAPA)-BBL2023001294

PATIENT

DRUGS (1)
  1. OGIVRI [Suspect]
     Active Substance: TRASTUZUMAB-DKST
     Indication: Breast cancer
     Dosage: 440 MG, Q3W (INFUSION AS TARGETED CANCER THERAPY)
     Route: 042
     Dates: end: 20230407

REACTIONS (1)
  - Tricuspid valve incompetence [Not Recovered/Not Resolved]
